FAERS Safety Report 13503870 (Version 5)
Quarter: 2017Q3

REPORT INFORMATION
  Report Type: Spontaneous
  Country: KR (occurrence: KR)
  Receive Date: 20170502
  Receipt Date: 20170807
  Transmission Date: 20171127
  Serious: Yes (Hospitalization, Other)
  Sender: FDA-Public Use
  Company Number: KR-009507513-1704KOR015268

PATIENT
  Age: 67 Year
  Sex: Male
  Weight: 64.1 kg

DRUGS (29)
  1. CYTARABINE. [Concomitant]
     Active Substance: CYTARABINE
     Dosage: 2000 MG, BID, CYCLE 3; STRENGTH REPORTED AS ^50 MG/ML 20ML/BTL^
     Route: 042
     Dates: start: 20161222, end: 20161222
  2. CYTARABINE. [Concomitant]
     Active Substance: CYTARABINE
     Dosage: 2000 MG, ONCE, CYCLE 5; STRENGTH REPORTED AS ^50 MG/ML 20ML/BTL^
     Route: 042
     Dates: start: 20170225, end: 20170225
  3. DEXAMETHASONE SODIUM PHOSPHATE. [Concomitant]
     Active Substance: DEXAMETHASONE SODIUM PHOSPHATE
     Dosage: 40 MG, QD; STRENGTH: 5 MG/ML
     Route: 042
     Dates: start: 20170131, end: 20170203
  4. ALOXI [Concomitant]
     Active Substance: PALONOSETRON HYDROCHLORIDE
     Indication: ANTIEMETIC SUPPORTIVE CARE
     Dosage: 0.25 MG, ONCE
     Route: 042
     Dates: start: 20161019, end: 20161019
  5. EMEND (FOSAPREPITANT DIMEGLUMINE) [Suspect]
     Active Substance: FOSAPREPITANT DIMEGLUMINE
     Indication: PROPHYLAXIS OF NAUSEA AND VOMITING
     Dosage: 150 MG, ONCE
     Route: 042
     Dates: start: 20161019, end: 20161019
  6. CISPLATIN. [Concomitant]
     Active Substance: CISPLATIN
     Indication: CHEMOTHERAPY
     Dosage: 170 MG, ONCE, CYCLE 1
     Route: 042
     Dates: start: 20161019, end: 20161019
  7. CISPLATIN. [Concomitant]
     Active Substance: CISPLATIN
     Dosage: 85 MG, ONCE, CYCLE 4
     Route: 042
     Dates: start: 20170131, end: 20170131
  8. DEXAMETHASONE SODIUM PHOSPHATE. [Concomitant]
     Active Substance: DEXAMETHASONE SODIUM PHOSPHATE
     Dosage: 40 MG, QD; STRENGTH: 5 MG/ML
     Route: 042
     Dates: start: 20161121, end: 20161124
  9. ULCERLMIN [Concomitant]
     Active Substance: SUCRALFATE
     Indication: PROPHYLAXIS AGAINST GASTROINTESTINAL ULCER
     Dosage: 15 ML, QID; STRENGTH REPORTED AS ^1G/15ML^
     Route: 048
  10. EMEND (FOSAPREPITANT DIMEGLUMINE) [Suspect]
     Active Substance: FOSAPREPITANT DIMEGLUMINE
     Dosage: 150 MG, ONCE
     Route: 042
     Dates: start: 20161221, end: 20161221
  11. CYTARABINE. [Concomitant]
     Active Substance: CYTARABINE
     Indication: CHEMOTHERAPY
     Dosage: 3400 MG, BID, CYCLE 1; STRENGTH REPORTED AS ^50 MG/ML 20ML/BTL^
     Route: 042
     Dates: start: 20161020, end: 20161020
  12. CISPLATIN. [Concomitant]
     Active Substance: CISPLATIN
     Dosage: 85 MG, ONCE, CYCLE 5
     Route: 042
     Dates: start: 20170224, end: 20170224
  13. DEXAMETHASONE SODIUM PHOSPHATE. [Concomitant]
     Active Substance: DEXAMETHASONE SODIUM PHOSPHATE
     Indication: ANTIEMETIC SUPPORTIVE CARE
     Dosage: 40 MG, QD; STRENGTH: 5 MG/ML
     Route: 042
     Dates: start: 20161019, end: 20161021
  14. ALOXI [Concomitant]
     Active Substance: PALONOSETRON HYDROCHLORIDE
     Dosage: 0.25 MG, ONCE
     Route: 042
     Dates: start: 20161121, end: 20161121
  15. ALOXI [Concomitant]
     Active Substance: PALONOSETRON HYDROCHLORIDE
     Dosage: 0.25 MG, ONCE
     Route: 042
     Dates: start: 20170131, end: 20170131
  16. MEDILAC-DS [Concomitant]
     Indication: CONSTIPATION PROPHYLAXIS
     Dosage: 1 CAPSULE, TID
     Route: 048
  17. CYTARABINE. [Concomitant]
     Active Substance: CYTARABINE
     Dosage: 2000 MG, QD, CYCLE 4; STRENGTH REPORTED AS ^50 MG/ML 20ML/BTL^
     Route: 042
     Dates: start: 20170201, end: 20170202
  18. LANSTON [Concomitant]
     Active Substance: LANSOPRAZOLE
     Indication: PROPHYLAXIS AGAINST GASTROINTESTINAL ULCER
     Dosage: 15 MG (1 TABLET), QD
     Route: 048
     Dates: end: 20170120
  19. CYTARABINE. [Concomitant]
     Active Substance: CYTARABINE
     Dosage: 2720 MG, QD, CYCLE 2,; STRENGTH REPORTED AS ^50 MG/ML 20ML/BTL^
     Route: 042
     Dates: start: 20161122, end: 20161123
  20. CISPLATIN. [Concomitant]
     Active Substance: CISPLATIN
     Dosage: 100 MG, ONCE, CYCLE 3
     Route: 042
     Dates: start: 20161221, end: 20161221
  21. ALOXI [Concomitant]
     Active Substance: PALONOSETRON HYDROCHLORIDE
     Dosage: 0.25 MG, ONCE
     Route: 042
     Dates: start: 20161221, end: 20161221
  22. ALOXI [Concomitant]
     Active Substance: PALONOSETRON HYDROCHLORIDE
     Dosage: 0.25 MG, ONCE
     Route: 042
     Dates: start: 20170224, end: 20170224
  23. EMEND (FOSAPREPITANT DIMEGLUMINE) [Suspect]
     Active Substance: FOSAPREPITANT DIMEGLUMINE
     Dosage: 150 MG, ONCE
     Route: 042
     Dates: start: 20170131, end: 20170131
  24. CISPLATIN. [Concomitant]
     Active Substance: CISPLATIN
     Dosage: 135 MG, ONCE, CYCLE 2
     Route: 042
     Dates: start: 20161121, end: 20161121
  25. DEXAMETHASONE SODIUM PHOSPHATE. [Concomitant]
     Active Substance: DEXAMETHASONE SODIUM PHOSPHATE
     Dosage: 40 MG, QD; STRENGTH: 5 MG/ML
     Route: 042
     Dates: start: 20170224, end: 20170227
  26. EMEND (FOSAPREPITANT DIMEGLUMINE) [Suspect]
     Active Substance: FOSAPREPITANT DIMEGLUMINE
     Dosage: 150 MG, ONCE
     Route: 042
     Dates: start: 20161121, end: 20161121
  27. EMEND (FOSAPREPITANT DIMEGLUMINE) [Suspect]
     Active Substance: FOSAPREPITANT DIMEGLUMINE
     Dosage: 150 MG, ONCE
     Route: 042
     Dates: start: 20170224, end: 20170224
  28. DEXAMETHASONE SODIUM PHOSPHATE. [Concomitant]
     Active Substance: DEXAMETHASONE SODIUM PHOSPHATE
     Dosage: 40 MG, QD; STRENGTH: 5 MG/ML
     Route: 042
     Dates: start: 20161221, end: 20161224
  29. MYCOSTATIN [Concomitant]
     Active Substance: NYSTATIN
     Indication: PROPHYLAXIS
     Dosage: 5 ML, QID; STRENGTH REPORTED AS ^100 KIU/ML^
     Route: 048
     Dates: end: 20161101

REACTIONS (12)
  - Neutropenia [Recovered/Resolved]
  - Pyrexia [Recovered/Resolved]
  - Nasopharyngitis [Recovered/Resolved]
  - Thrombocytopenia [Recovered/Resolved]
  - Acute kidney injury [Not Recovered/Not Resolved]
  - Thrombocytopenia [Recovered/Resolved]
  - Decreased appetite [Recovered/Resolved]
  - Neutropenia [Recovered/Resolved]
  - Decreased appetite [Recovered/Resolved]
  - Anaemia [Not Recovered/Not Resolved]
  - Thrombocytopenia [Not Recovered/Not Resolved]
  - Hypokalaemia [Recovered/Resolved]

NARRATIVE: CASE EVENT DATE: 20161021
